FAERS Safety Report 7946898-1 (Version None)
Quarter: 2011Q4

REPORT INFORMATION
  Report Type: 
  Country: None (occurrence: None)
  Receive Date: 20111129
  Receipt Date: 20111115
  Transmission Date: 20120403
  Serious: Yes (Other)
  Sender: FDA-Public Use
  Company Number: JP-WATSON-2011-19772

PATIENT
  Age: 56 Year
  Sex: Female

DRUGS (3)
  1. FLUOROURACIL [Suspect]
     Indication: COLON CANCER RECURRENT
     Dosage: UNKNOWN
     Route: 065
  2. LEUCOVORIN CALCIUM [Suspect]
     Indication: COLON CANCER RECURRENT
     Dosage: UNKNOWN
  3. OXALIPLATIN [Suspect]
     Indication: COLON CANCER RECURRENT
     Dosage: UNKNOWN

REACTIONS (2)
  - HYPERAMMONAEMIA [None]
  - ALTERED STATE OF CONSCIOUSNESS [None]
